FAERS Safety Report 8047341-7 (Version None)
Quarter: 2012Q1

REPORT INFORMATION
  Report Type: 
  Country: None (occurrence: None)
  Receive Date: 20120116
  Receipt Date: 20120111
  Transmission Date: 20120608
  Serious: Yes (Hospitalization)
  Sender: FDA-Public Use
  Company Number: GB-TEVA-317202ISR

PATIENT
  Age: 77 Year
  Sex: Female

DRUGS (10)
  1. ACETAMINOPHEN [Concomitant]
  2. CODEINE SULFATE [Concomitant]
  3. FERROUS SULFATE TAB [Concomitant]
  4. TRAZODONE HCL [Suspect]
     Route: 048
     Dates: start: 20111222, end: 20111223
  5. LORAZEPAM [Concomitant]
  6. POLYETHYLENE GLYCOL [Concomitant]
  7. CALCIUM CARBONATE [Concomitant]
  8. GALANTAMINE HYDROBROMIDE [Concomitant]
  9. ALENDRONIC ACID [Concomitant]
  10. CITALOPRAM [Concomitant]

REACTIONS (5)
  - CHAPPED LIPS [None]
  - SWOLLEN TONGUE [None]
  - LIP SWELLING [None]
  - TONGUE EXFOLIATION [None]
  - LIP PAIN [None]
